FAERS Safety Report 5341149-9 (Version None)
Quarter: 2007Q2

REPORT INFORMATION
  Report Type: 
  Country: None (occurrence: None)
  Receive Date: 20070405
  Receipt Date: 20070108
  Transmission Date: 20071010
  Serious: No
  Sender: FDA-Public Use
  Company Number: US200701001639

PATIENT
  Age: 40 Year
  Sex: Female

DRUGS (4)
  1. CYMBALTA [Suspect]
     Indication: ANXIETY
     Dosage: SEE IMAGE
     Dates: start: 20061101
  2. VERAPAMIL [Concomitant]
  3. IMITREX [Concomitant]
  4. MAGNESIUM (MAGNESIUM) [Concomitant]

REACTIONS (3)
  - IRRITABILITY [None]
  - PARAESTHESIA [None]
  - TENSION HEADACHE [None]
